FAERS Safety Report 8961651 (Version 1)
Quarter: 2012Q4

REPORT INFORMATION
  Report Type: 
  Country: US (occurrence: US)
  Receive Date: 20121212
  Receipt Date: 20121212
  Transmission Date: 20130627
  Serious: Yes (Hospitalization)
  Sender: FDA-Public Use
  Company Number: US-CELGENEUS-163-21880-12120425

PATIENT
  Age: 70 Year
  Sex: Female
  Weight: 55.84 kg

DRUGS (3)
  1. REVLIMID [Suspect]
     Indication: MULTIPLE MYELOMA
     Dosage: 25 Milligram
     Route: 048
     Dates: start: 201003, end: 2010
  2. REVLIMID [Suspect]
     Dosage: 10 Milligram
     Route: 048
     Dates: start: 20110203, end: 201104
  3. REVLIMID [Suspect]
     Dosage: 15 Milligram
     Route: 048
     Dates: start: 201104, end: 2012

REACTIONS (4)
  - Balance disorder [Unknown]
  - Cerebrovascular accident [Unknown]
  - Dizziness [Unknown]
  - Asthenia [Unknown]
